FAERS Safety Report 5805082-8 (Version None)
Quarter: 2008Q3

REPORT INFORMATION
  Report Type: 
  Country: None (occurrence: None)
  Receive Date: 20080709
  Receipt Date: 20080625
  Transmission Date: 20090109
  Serious: Yes (Hospitalization, Disabling)
  Sender: FDA-Public Use
  Company Number: US-ELI_LILLY_AND_COMPANY-US200805004937

PATIENT
  Sex: Female

DRUGS (8)
  1. FORTEO [Suspect]
     Indication: OSTEOPOROSIS
     Dates: start: 20080421
  2. FORTEO [Interacting]
  3. FENTANYL [Concomitant]
     Dosage: UNK, UNK
  4. ZOLOFT [Concomitant]
     Dosage: UNK, UNK
  5. DILANTIN [Concomitant]
  6. NAMENDA [Concomitant]
  7. NEURONTIN [Concomitant]
  8. ARICEPT [Concomitant]

REACTIONS (8)
  - BALANCE DISORDER [None]
  - COORDINATION ABNORMAL [None]
  - DIZZINESS [None]
  - DYSARTHRIA [None]
  - GAIT DISTURBANCE [None]
  - MENTAL STATUS CHANGES [None]
  - TRANSIENT ISCHAEMIC ATTACK [None]
  - VULVOVAGINAL MYCOTIC INFECTION [None]
